FAERS Safety Report 7225648-0 (Version None)
Quarter: 2011Q1

REPORT INFORMATION
  Report Type: 
  Country: None (occurrence: None)
  Receive Date: 20110113
  Receipt Date: 20110104
  Transmission Date: 20110831
  Serious: Yes (Hospitalization)
  Sender: FDA-Public Use
  Company Number: CA-ASTRAZENECA-2011SE00645

PATIENT
  Age: 67 Year
  Sex: Female

DRUGS (10)
  1. LOVAZA [Concomitant]
     Route: 048
  2. LIPITOR [Concomitant]
     Route: 048
  3. ATACAND HCT [Suspect]
     Route: 048
     Dates: start: 20110103, end: 20110103
  4. VITAMIN D [Concomitant]
     Route: 048
  5. MYLAN-VERAPAMIL [Concomitant]
     Route: 048
  6. ASPIRIN [Concomitant]
     Route: 048
  7. MULTI-VITAMIN [Concomitant]
     Route: 048
  8. ACIDOPHILUS [Concomitant]
     Route: 048
  9. COQ 10 [Concomitant]
     Route: 048
  10. VITAMIN B [Concomitant]
     Route: 048

REACTIONS (5)
  - RETCHING [None]
  - TREMOR [None]
  - NASOPHARYNGITIS [None]
  - HYPERSENSITIVITY [None]
  - TEMPERATURE REGULATION DISORDER [None]
